FAERS Safety Report 16358816 (Version 2)
Quarter: 2019Q4

REPORT INFORMATION
  Report Type: Report from Study
  Country: DE (occurrence: DE)
  Receive Date: 20190527
  Receipt Date: 20191210
  Transmission Date: 20200122
  Serious: Yes (Hospitalization, Other)
  Sender: FDA-Public Use
  Company Number: DE-MYLANLABS-2019M1048668

PATIENT
  Age: 69 Year
  Sex: Female
  Weight: 87 kg

DRUGS (5)
  1. AMLODIPIN                          /00972401/ [Concomitant]
     Active Substance: AMLODIPINE BESYLATE
     Indication: HYPERTENSION
     Dosage: 5 MILLIGRAM, QD
     Route: 048
  2. TRASTUZUMAB. [Suspect]
     Active Substance: TRASTUZUMAB
     Indication: BREAST CANCER
     Dosage: 6 MILLIGRAM/KILOGRAM, Q21D, TOTAL DOSE (522 MG) THE NEXT DOSE RECEIVED ON 20/FEB/2018
     Route: 042
     Dates: start: 20180126
  3. TAXOTERE [Suspect]
     Active Substance: DOCETAXEL
     Indication: BREAST CANCER
     Dosage: 75 MILLIGRAM/SQ. METER, Q21D
     Route: 042
     Dates: start: 20180126
  4. FEMARA [Suspect]
     Active Substance: LETROZOLE
     Indication: BREAST CANCER
     Dosage: 2.5 MILLIGRAM
     Route: 048
     Dates: start: 20180611
  5. PERTUZUMAB. [Suspect]
     Active Substance: PERTUZUMAB
     Indication: BREAST CANCER
     Dosage: 420 MILLIGRAM, Q21D, THE NEXT DOSE RECEIVED ON 20/FEB/2018
     Route: 042
     Dates: start: 20180126

REACTIONS (5)
  - Fatigue [Recovered/Resolved]
  - Tooth development disorder [Unknown]
  - General physical health deterioration [Recovered/Resolved]
  - Venous thrombosis limb [Recovered/Resolved]
  - Diarrhoea [Recovered/Resolved]

NARRATIVE: CASE EVENT DATE: 20180126
